FAERS Safety Report 6784899-X (Version None)
Quarter: 2010Q2

REPORT INFORMATION
  Report Type: 
  Country: None (occurrence: None)
  Receive Date: 20100622
  Receipt Date: 20100610
  Transmission Date: 20101027
  Serious: Yes (Hospitalization)
  Sender: FDA-Public Use
  Company Number: US-WYE-H15134410

PATIENT
  Sex: Male
  Weight: 90.8 kg

DRUGS (8)
  1. EFFEXOR XR [Suspect]
     Indication: DEPRESSION
     Route: 048
     Dates: start: 20040101, end: 20080101
  2. EFFEXOR XR [Suspect]
     Route: 048
     Dates: start: 20080101
  3. ZYPREXA [Suspect]
  4. ZYPREXA [Suspect]
     Dosage: TAKING HALF A 20 MG TABLET AT 4 PM AND HALF AT 8 PM
  5. VITAMIN B-12 [Concomitant]
  6. LAMICTAL [Suspect]
     Indication: MOOD ALTERED
     Dosage: 75 MG, FREQUENCY UNKNOWN
     Dates: end: 20080101
  7. LAMICTAL [Suspect]
     Route: 048
     Dates: start: 20080101
  8. TRILEPTAL [Concomitant]
     Indication: MOOD ALTERED
     Dates: end: 20080101

REACTIONS (18)
  - AGGRESSION [None]
  - AGITATION [None]
  - ANGER [None]
  - DRUG EFFECT DECREASED [None]
  - DYSPNOEA EXERTIONAL [None]
  - FEELING OF DESPAIR [None]
  - HOSTILITY [None]
  - HYPOAESTHESIA [None]
  - HYPOTHYROIDISM [None]
  - INSOMNIA [None]
  - IRRITABILITY [None]
  - MANIA [None]
  - MOOD ALTERED [None]
  - MUSCLE TIGHTNESS [None]
  - NERVOUSNESS [None]
  - SCHIZOPHRENIFORM DISORDER [None]
  - UNEVALUABLE EVENT [None]
  - WEIGHT INCREASED [None]
